FAERS Safety Report 25844568 (Version 1)
Quarter: 2025Q3

REPORT INFORMATION
  Report Type: Spontaneous
  Country: US (occurrence: US)
  Receive Date: 20250925
  Receipt Date: 20250925
  Transmission Date: 20251021
  Serious: Yes (Other)
  Sender: UNILEVER
  Company Number: US-Unilever-2185256

PATIENT
  Age: 25 Year
  Sex: Female

DRUGS (1)
  1. DOVE (BENZALKONIUM CHLORIDE) [Suspect]
     Active Substance: BENZALKONIUM CHLORIDE
     Dates: start: 20250829

REACTIONS (3)
  - Pruritus [Not Recovered/Not Resolved]
  - Vulvovaginal mycotic infection [Not Recovered/Not Resolved]
  - Rash [Not Recovered/Not Resolved]
